FAERS Safety Report 5876907-5 (Version None)
Quarter: 2008Q3

REPORT INFORMATION
  Report Type: 
  Country: None (occurrence: None)
  Receive Date: 20080908
  Receipt Date: 20080829
  Transmission Date: 20090109
  Serious: Yes (Other)
  Sender: FDA-Public Use
  Company Number: DSA_32354_2008

PATIENT
  Sex: Female

DRUGS (3)
  1. ATIVAN [Suspect]
     Indication: ANXIETY
     Dosage: 1 MG 1 TO 2 MG/DAY ORAL
     Route: 048
  2. ATIVAN [Suspect]
     Indication: INSOMNIA
     Dosage: 1 MG 1 TO 2 MG/DAY ORAL
     Route: 048
  3. CADUET [Concomitant]

REACTIONS (5)
  - BRAIN NEOPLASM [None]
  - DIZZINESS [None]
  - GASTRIC NEOPLASM [None]
  - PHARMACEUTICAL PRODUCT COMPLAINT [None]
  - POLLAKIURIA [None]
